FAERS Safety Report 6493425-4 (Version None)
Quarter: 2009Q4

REPORT INFORMATION
  Report Type: 
  Country: None (occurrence: None)
  Receive Date: 20091211
  Receipt Date: 20091211
  Transmission Date: 20100525
  Serious: Yes (Disabling)
  Sender: FDA-Public Use
  Company Number: None

PATIENT
  Age: 52 Year
  Sex: Female
  Weight: 68.0396 kg

DRUGS (3)
  1. HYDROCODONE BITARTRATE [Suspect]
     Indication: MIGRAINE
     Dosage: 7 AS NEEDED ORAL
     Route: 048
     Dates: start: 19700321, end: 20090829
  2. NORTRIPTYLINE HCL [Suspect]
  3. NEURONTIN [Suspect]

REACTIONS (6)
  - DIZZINESS [None]
  - HEADACHE [None]
  - MIDDLE INSOMNIA [None]
  - MUSCLE SPASMS [None]
  - NAUSEA [None]
  - UNEVALUABLE EVENT [None]
